FAERS Safety Report 5583894-6 (Version None)
Quarter: 2008Q1

REPORT INFORMATION
  Report Type: 
  Country: None (occurrence: None)
  Receive Date: 20080102
  Receipt Date: 20080102
  Transmission Date: 20080703
  Serious: Yes (Other)
  Sender: FDA-Public Use
  Company Number: None

PATIENT
  Sex: Female
  Weight: 59.8748 kg

DRUGS (1)
  1. BACLOFEN 25MG UNKNOWN [Suspect]
     Indication: MUSCLE CONTRACTIONS INVOLUNTARY
     Dosage: 1-2 TABLETS  TWICE DAILY  PO
     Route: 048
     Dates: start: 20060829, end: 20070904

REACTIONS (5)
  - DRUG INEFFECTIVE [None]
  - FALL [None]
  - INSOMNIA [None]
  - THERAPEUTIC RESPONSE UNEXPECTED [None]
  - TREMOR [None]
